FAERS Safety Report 8667396 (Version 5)
Quarter: 2012Q4

REPORT INFORMATION
  Report Type: 
  Country: US (occurrence: US)
  Receive Date: 20120717
  Receipt Date: 20121108
  Transmission Date: 20130627
  Serious: Yes (Life-Threatening)
  Sender: FDA-Public Use
  Company Number: US-GENZYME-CERZ-1002559

PATIENT
  Age: 23 Year
  Sex: Female
  Weight: 58.2 kg

DRUGS (5)
  1. CEREZYME [Suspect]
     Indication: GAUCHER^S DISEASE
     Dosage: 34.36 U/kg, q2w
     Route: 042
     Dates: start: 2011, end: 20120629
  2. CEREZYME [Suspect]
     Dosage: 34.36 U/kg, q2w
     Route: 042
     Dates: start: 200411, end: 2009
  3. DIPHENHYDRAMINE [Concomitant]
     Indication: PREMEDICATION
     Dosage: 25 mg x2, pre and during infusion
     Route: 065
     Dates: start: 20120629, end: 20120629
  4. JOLESSA [Concomitant]
     Indication: CONTRACEPTION
     Route: 065
  5. VPRIV [Concomitant]
     Indication: GAUCHER^S DISEASE
     Dosage: UNK
     Route: 065
     Dates: start: 2009, end: 201104

REACTIONS (5)
  - Anaphylactic reaction [Recovered/Resolved]
  - Rash macular [Recovered/Resolved]
  - Chest discomfort [Recovered/Resolved]
  - Throat tightness [Recovered/Resolved]
  - Pruritus [Unknown]
